FAERS Safety Report 7478822-2 (Version None)
Quarter: 2011Q2

REPORT INFORMATION
  Report Type: 
  Country: None (occurrence: None)
  Receive Date: 20110513
  Receipt Date: 20110504
  Transmission Date: 20111010
  Serious: Yes (Hospitalization, Other)
  Sender: FDA-Public Use
  Company Number: US-ROCHE-775751

PATIENT
  Sex: Female
  Weight: 72 kg

DRUGS (14)
  1. HERCEPTIN [Suspect]
     Route: 042
     Dates: start: 20110411, end: 20110425
  2. DOCETAXEL [Suspect]
     Indication: BREAST CANCER
     Route: 065
     Dates: start: 20110131
  3. TAMOXIFEN CITRATE [Concomitant]
  4. HYDROCHLOROTHIAZIDE [Concomitant]
  5. LORAZEPAM [Concomitant]
  6. HERCEPTIN [Suspect]
     Indication: BREAST CANCER
     Route: 042
     Dates: start: 20110131
  7. CARBOPLATIN [Suspect]
     Indication: BREAST CANCER
     Route: 065
     Dates: start: 20110131
  8. CARVEDILOL [Concomitant]
  9. LISINOPRIL [Concomitant]
  10. HERCEPTIN [Suspect]
     Route: 042
     Dates: start: 20110207
  11. HERCEPTIN [Suspect]
     Route: 042
     Dates: start: 20110405
  12. POTASSIUM CHLORIDE [Concomitant]
  13. PROTONIX [Concomitant]
  14. DECADRON [Concomitant]

REACTIONS (7)
  - WEIGHT DECREASED [None]
  - WHITE BLOOD CELL COUNT DECREASED [None]
  - NEUTROPHIL COUNT DECREASED [None]
  - VOMITING [None]
  - SYNCOPE [None]
  - NAUSEA [None]
  - DEHYDRATION [None]
